FAERS Safety Report 6715280-7 (Version None)
Quarter: 2010Q2

REPORT INFORMATION
  Report Type: 
  Country: None (occurrence: None)
  Receive Date: 20100506
  Receipt Date: 20100506
  Transmission Date: 20101027
  Serious: Yes (Disabling)
  Sender: FDA-Public Use
  Company Number: None

PATIENT
  Age: 49 Year
  Sex: Female
  Weight: 72.5755 kg

DRUGS (1)
  1. GENTAMICIN [Suspect]
     Indication: LYMPHADENITIS
     Dosage: 400 MG DAILY IV
     Route: 042
     Dates: start: 20081001, end: 20081027

REACTIONS (11)
  - ANXIETY [None]
  - ARTHRALGIA [None]
  - ASTHENOPIA [None]
  - DEPRESSION [None]
  - DISTURBANCE IN ATTENTION [None]
  - DIZZINESS [None]
  - DRUG TOXICITY [None]
  - HYPERACUSIS [None]
  - NAUSEA [None]
  - TINNITUS [None]
  - VERTIGO [None]
